FAERS Safety Report 7012707-0 (Version None)
Quarter: 2010Q3

REPORT INFORMATION
  Report Type: 
  Country: None (occurrence: None)
  Receive Date: 20100914
  Receipt Date: 20091019
  Transmission Date: 20110219
  Serious: Yes (Other)
  Sender: FDA-Public Use
  Company Number: 2009280078

PATIENT
  Age: 81 Year
  Sex: Female
  Weight: 62.6 kg

DRUGS (3)
  1. GLUCOTROL XL [Suspect]
     Indication: DIABETES MELLITUS
     Dosage: 7.5 MG, 1X/DAY, ORAL
     Route: 048
  2. LIPITOR [Concomitant]
  3. METOPROLOL SUCCINATE [Concomitant]

REACTIONS (2)
  - BLOOD GLUCOSE DECREASED [None]
  - WRONG TECHNIQUE IN DRUG USAGE PROCESS [None]
